FAERS Safety Report 13648373 (Version 1)
Quarter: 2017Q2

REPORT INFORMATION
  Report Type: Spontaneous
  Country: US (occurrence: US)
  Receive Date: 20170613
  Receipt Date: 20170613
  Transmission Date: 20170830
  Serious: No
  Sender: FDA-Public Use
  Company Number: US-ENDO PHARMACEUTICALS INC-2016-005793

PATIENT
  Sex: Male
  Weight: 38.6 kg

DRUGS (3)
  1. SUPPRELIN LA [Suspect]
     Active Substance: HISTRELIN ACETATE
     Route: 058
  2. SUPPRELIN LA [Suspect]
     Active Substance: HISTRELIN ACETATE
     Route: 058
     Dates: start: 20160627
  3. SUPPRELIN LA [Suspect]
     Active Substance: HISTRELIN ACETATE
     Indication: PRECOCIOUS PUBERTY

REACTIONS (2)
  - Treatment noncompliance [Recovered/Resolved]
  - Inappropriate schedule of drug administration [Recovered/Resolved]
